FAERS Safety Report 9828939 (Version 1)
Quarter: 2014Q1

REPORT INFORMATION
  Report Type: Spontaneous
  Country: US (occurrence: US)
  Receive Date: 20140118
  Receipt Date: 20140118
  Transmission Date: 20141002
  Serious: No
  Sender: FDA-Public Use
  Company Number: US-009507513-1401USA004062

PATIENT
  Age: 27 Year
  Sex: Female

DRUGS (5)
  1. CLARITIN-D-24 [Suspect]
     Indication: NASOPHARYNGITIS
     Dosage: UNK, UNKNOWN
     Route: 048
     Dates: start: 201312
  2. CLARITIN-D-24 [Suspect]
     Indication: RESPIRATORY TRACT CONGESTION
  3. CLARITIN-D-24 [Suspect]
     Indication: SNEEZING
  4. CLARITIN-D-24 [Suspect]
     Indication: PAIN
  5. CLARITIN-D-24 [Suspect]
     Indication: COUGH

REACTIONS (2)
  - Drug effect decreased [Unknown]
  - Drug ineffective for unapproved indication [Unknown]
